FAERS Safety Report 9650995 (Version 2)
Quarter: 2013Q4

REPORT INFORMATION
  Report Type: Spontaneous
  Country: US (occurrence: US)
  Receive Date: 20131029
  Receipt Date: 20131029
  Transmission Date: 20140711
  Serious: Yes (Hospitalization, Other)
  Sender: FDA-Public Use
  Company Number: US-UCBSA-028237

PATIENT
  Age: 67 Year
  Sex: Female

DRUGS (7)
  1. CIMZIA [Suspect]
     Indication: CROHN^S DISEASE
     Dosage: EXP DATE: ??/NOV/2014
     Route: 058
     Dates: start: 200806, end: 20110222
  2. CIMZIA [Suspect]
     Indication: CROHN^S DISEASE
     Dosage: DUE FROM 08/MAR/2011
     Route: 058
  3. QVAR INHALER [Concomitant]
     Indication: ASTHMA
     Dosage: 2 PUFFS TID
     Route: 048
     Dates: start: 1990
  4. VENTOLIN [Concomitant]
     Indication: ASTHMA
     Dosage: ONE PUFF TID
     Route: 048
     Dates: start: 1990
  5. FLORICET [Concomitant]
     Indication: MIGRAINE
     Dosage: 10/325 MG DAILY
     Route: 048
     Dates: start: 1990
  6. VITAMINS; CALCIUM+ MAGNESIUM, VITAMIN D [Concomitant]
     Route: 048
  7. BONIVA [Concomitant]
     Indication: OSTEOPOROSIS
     Dosage: ONE SHOT EVERY THREE MONTHS
     Route: 030
     Dates: start: 2010

REACTIONS (7)
  - Surgery [Recovering/Resolving]
  - Bartholin^s cyst [Recovered/Resolved]
  - Fistula [Recovered/Resolved]
  - Urinary bladder haemorrhage [Recovered/Resolved]
  - Urinary tract infection [Unknown]
  - Diarrhoea [Recovered/Resolved]
  - Inappropriate schedule of drug administration [Unknown]
